FAERS Safety Report 21295795 (Version 1)
Quarter: 2022Q3

REPORT INFORMATION
  Report Type: Report from Study
  Country: CA (occurrence: CA)
  Receive Date: 20220906
  Receipt Date: 20220906
  Transmission Date: 20221026
  Serious: Yes (Other)
  Sender: FDA-Public Use
  Company Number: CA-NOVARTISPH-PHHY2016CA066992

PATIENT
  Age: 47 Year
  Sex: Female

DRUGS (1)
  1. GILENYA [Suspect]
     Active Substance: FINGOLIMOD HYDROCHLORIDE
     Indication: Relapsing-remitting multiple sclerosis
     Dosage: UNK
     Route: 048
     Dates: start: 20150811, end: 20220825

REACTIONS (9)
  - Dermoid cyst [Unknown]
  - Arthralgia [Unknown]
  - Pain in extremity [Unknown]
  - Insomnia [Unknown]
  - Night sweats [Unknown]
  - Premature menopause [Unknown]
  - Erythema [Unknown]
  - Tenderness [Unknown]
  - Rash [Unknown]

NARRATIVE: CASE EVENT DATE: 20160101
